FAERS Safety Report 9894413 (Version 1)
Quarter: 2014Q1

REPORT INFORMATION
  Report Type: Spontaneous
  Country: CZ (occurrence: CZ)
  Receive Date: 20140213
  Receipt Date: 20140213
  Transmission Date: 20141002
  Serious: Yes (Hospitalization)
  Sender: FDA-Public Use
  Company Number: PHHY2014CZ015243

PATIENT
  Age: 61 Year
  Sex: Female

DRUGS (1)
  1. ATORVASTATIN [Suspect]
     Indication: HYPERCHOLESTEROLAEMIA
     Dosage: 10 MG, QD

REACTIONS (6)
  - Myopathy [Recovering/Resolving]
  - Myalgia [Recovering/Resolving]
  - Musculoskeletal stiffness [Recovering/Resolving]
  - Muscular weakness [Recovering/Resolving]
  - Blood creatine phosphokinase increased [Recovering/Resolving]
  - Cardiac fibrillation [Recovering/Resolving]
